FAERS Safety Report 4947815-9 (Version None)
Quarter: 2006Q1

REPORT INFORMATION
  Report Type: 
  Country: None (occurrence: None)
  Receive Date: 20060320
  Receipt Date: 20060317
  Transmission Date: 20060701
  Serious: Yes (Death, Hospitalization)
  Sender: FDA-Public Use
  Company Number: 98070119-CAR001A

PATIENT
  Age: 63 Year
  Sex: Male

DRUGS (11)
  1. CARVEDILOL [Suspect]
     Indication: CARDIAC FAILURE CONGESTIVE
     Route: 048
     Dates: start: 19980220, end: 19980625
  2. DIGOXIN [Concomitant]
  3. DIART [Concomitant]
  4. LASIX [Concomitant]
  5. RENIVACE [Concomitant]
  6. MEXITIL [Concomitant]
  7. ALDACTONE [Concomitant]
  8. SALOBEL [Concomitant]
  9. FAMOTIDINE [Concomitant]
  10. ALUMINIUM MAGNESIUM HCO3 [Concomitant]
  11. CRAVIT [Concomitant]

REACTIONS (13)
  - ACUTE PULMONARY OEDEMA [None]
  - BRAIN HERNIATION [None]
  - CARDIAC FAILURE [None]
  - CEREBRAL ARTERY EMBOLISM [None]
  - CEREBRAL INFARCTION [None]
  - CHEYNE-STOKES RESPIRATION [None]
  - DRUG WITHDRAWAL SYNDROME [None]
  - HEMIPLEGIA [None]
  - HYPOTENSION [None]
  - MULTI-ORGAN FAILURE [None]
  - PO2 DECREASED [None]
  - RESPIRATORY FAILURE [None]
  - SHOCK [None]
